APPROVED DRUG PRODUCT: SERPASIL-APRESOLINE
Active Ingredient: HYDRALAZINE HYDROCHLORIDE; RESERPINE
Strength: 25MG;0.1MG
Dosage Form/Route: TABLET;ORAL
Application: N009296 | Product #004
Applicant: NOVARTIS PHARMACEUTICALS CORP
Approved: Approved Prior to Jan 1, 1982 | RLD: No | RS: No | Type: DISCN